FAERS Safety Report 9370550 (Version 1)
Quarter: 2013Q2

REPORT INFORMATION
  Report Type: Spontaneous
  Country: NL (occurrence: NL)
  Receive Date: 20130626
  Receipt Date: 20130626
  Transmission Date: 20140414
  Serious: Yes (Other)
  Sender: FDA-Public Use
  Company Number: NL-ASTRAZENECA-2013SE40761

PATIENT
  Age: 59 Year
  Sex: Male
  Weight: 90 kg

DRUGS (1)
  1. CRESTOR [Suspect]
     Route: 048
     Dates: start: 20110301, end: 20120531

REACTIONS (4)
  - Erythema [Recovered/Resolved]
  - Local swelling [Recovered/Resolved]
  - Myalgia [Recovered/Resolved]
  - Mobility decreased [Unknown]
